FAERS Safety Report 5723184-1 (Version None)
Quarter: 2008Q2

REPORT INFORMATION
  Report Type: 
  Country: None (occurrence: None)
  Receive Date: 20080425
  Receipt Date: 20080412
  Transmission Date: 20081010
  Serious: Yes (Disabling, Other)
  Sender: FDA-Public Use
  Company Number: OSCN-NO-0804L-0206

PATIENT
  Age: 51 Year
  Sex: Female

DRUGS (2)
  1. OMNISCAN [Suspect]
     Indication: MUSCULOSKELETAL PAIN
     Dosage: 5.8 ML, SINGLE DOSE, I.V.
     Route: 042
     Dates: start: 20060101, end: 20060101
  2. OMNISCAN [Suspect]
     Indication: MUSCULOSKELETAL PAIN
     Dosage: 5.8 ML, SINGLE DOSE, I.V.
     Route: 042
     Dates: start: 20060701, end: 20060701

REACTIONS (24)
  - ABASIA [None]
  - BIOPSY MUSCLE ABNORMAL [None]
  - BIOPSY SKIN ABNORMAL [None]
  - HYPERCAPNIA [None]
  - INFLAMMATION [None]
  - JOINT RANGE OF MOTION DECREASED [None]
  - LOSS OF CONSCIOUSNESS [None]
  - MASS EXCISION [None]
  - MUSCLE FIBROSIS [None]
  - MUSCLE SWELLING [None]
  - MUSCULAR WEAKNESS [None]
  - MYOPATHY [None]
  - MYOPATHY TOXIC [None]
  - MYOSITIS [None]
  - OEDEMA PERIPHERAL [None]
  - PITTING OEDEMA [None]
  - RESPIRATORY FAILURE [None]
  - SKIN DISORDER [None]
  - SKIN FIBROSIS [None]
  - SKIN INDURATION [None]
  - SKIN TIGHTNESS [None]
  - SKIN TOXICITY [None]
  - SOFT TISSUE DISORDER [None]
  - URINE OUTPUT DECREASED [None]
